FAERS Safety Report 6686695-0 (Version None)
Quarter: 2010Q2

REPORT INFORMATION
  Report Type: 
  Country: None (occurrence: None)
  Receive Date: 20100419
  Receipt Date: 20100412
  Transmission Date: 20101027
  Serious: Yes (Death)
  Sender: FDA-Public Use
  Company Number: CN-JNJFOC-20100404082

PATIENT
  Sex: Male

DRUGS (5)
  1. TOPIRAMATE [Suspect]
     Indication: CONVULSION
     Route: 048
  2. TOPIRAMATE [Suspect]
     Dosage: MORNING 75MG; NIGHT 100MG/TABLETS/25 MG/BID/PO
     Route: 048
  3. TOPIRAMATE [Suspect]
     Indication: LOSS OF CONSCIOUSNESS
     Route: 048
  4. TOPIRAMATE [Suspect]
     Dosage: MORNING 75MG; NIGHT 100MG/TABLETS/25 MG/BID/PO
     Route: 048
  5. UNKNOWN MEDICATION [Concomitant]
     Dosage: HALF TABLET
     Route: 048

REACTIONS (1)
  - COMPLETED SUICIDE [None]
